FAERS Safety Report 6237561-6 (Version None)
Quarter: 2009Q2

REPORT INFORMATION
  Report Type: 
  Country: None (occurrence: None)
  Receive Date: 20090617
  Receipt Date: 20090602
  Transmission Date: 20091009
  Serious: Yes (Other)
  Sender: FDA-Public Use
  Company Number: 2009RR-24321

PATIENT
  Age: 69 Year
  Sex: Male

DRUGS (2)
  1. CARBILEV (CARBIDOPA, LEVODOPA) UNKNOWN [Suspect]
     Indication: PARKINSON'S DISEASE
     Dosage: 1400MG
  2. PRAMIPEXOLE DIHYDROCHLORIDE [Suspect]
     Indication: PARKINSON'S DISEASE
     Dosage: 4.5 MG, QD

REACTIONS (2)
  - GAMBLING [None]
  - LIBIDO INCREASED [None]
